FAERS Safety Report 8047149-2 (Version None)
Quarter: 2012Q1

REPORT INFORMATION
  Report Type: 
  Country: None (occurrence: None)
  Receive Date: 20120116
  Receipt Date: 20120106
  Transmission Date: 20120608
  Serious: Yes (Other)
  Sender: FDA-Public Use
  Company Number: US-JNJFOC-20111111409

PATIENT
  Sex: Male
  Weight: 69.4 kg

DRUGS (3)
  1. ZYTIGA [Suspect]
     Indication: PROSTATE CANCER
     Route: 048
  2. ZYTIGA [Suspect]
     Route: 048
     Dates: start: 20110101
  3. FOLIC ACID [Concomitant]
     Indication: PRODUCT USED FOR UNKNOWN INDICATION
     Route: 048
     Dates: start: 20020101

REACTIONS (4)
  - PAIN [None]
  - HEADACHE [None]
  - STENT PLACEMENT [None]
  - DRUG ADMINISTRATION ERROR [None]
